FAERS Safety Report 7123002-3 (Version None)
Quarter: 2010Q4

REPORT INFORMATION
  Report Type: 
  Country: None (occurrence: None)
  Receive Date: 20101124
  Receipt Date: 20101111
  Transmission Date: 20110411
  Serious: Yes (Other)
  Sender: FDA-Public Use
  Company Number: DE-ELI_LILLY_AND_COMPANY-DE201011003260

PATIENT
  Age: 39 Year
  Sex: Male

DRUGS (6)
  1. FORTEO [Suspect]
     Indication: OSTEOPOROSIS
     Route: 058
     Dates: start: 20100517
  2. TILIDIN [Concomitant]
  3. VIT D [Concomitant]
  4. CALCIUM [Concomitant]
  5. OPIPRAMOL [Concomitant]
     Dates: start: 20101001
  6. NICOTINE [Concomitant]

REACTIONS (4)
  - CROHN'S DISEASE [None]
  - DEPRESSION [None]
  - MENTAL DISORDER [None]
  - PELVIC VENOUS THROMBOSIS [None]
